FAERS Safety Report 16798596 (Version 2)
Quarter: 2019Q4

REPORT INFORMATION
  Report Type: Spontaneous
  Country: US (occurrence: US)
  Receive Date: 20190912
  Receipt Date: 20191017
  Transmission Date: 20200122
  Serious: Yes (Other)
  Sender: FDA-Public Use
  Company Number: US-ASTRAZENECA-2018SF65949

PATIENT
  Age: 775 Month
  Sex: Female
  Weight: 88.5 kg

DRUGS (25)
  1. SYNTHROID [Concomitant]
     Active Substance: LEVOTHYROXINE SODIUM
  2. METROGEL [Concomitant]
     Active Substance: METRONIDAZOLE
  3. PRILOSEC [Suspect]
     Active Substance: OMEPRAZOLE MAGNESIUM
     Indication: GASTROOESOPHAGEAL REFLUX DISEASE
     Route: 048
  4. ASACOL [Concomitant]
     Active Substance: MESALAMINE
  5. PREVACID 24 HR [Suspect]
     Active Substance: LANSOPRAZOLE
     Route: 065
     Dates: start: 20070101, end: 20180730
  6. TRAMADOL. [Concomitant]
     Active Substance: TRAMADOL
  7. LOSARTAN. [Concomitant]
     Active Substance: LOSARTAN
  8. NEXIUM [Suspect]
     Active Substance: ESOMEPRAZOLE MAGNESIUM
     Indication: GASTROOESOPHAGEAL REFLUX DISEASE
     Route: 048
     Dates: start: 201001
  9. PRILOSEC OTC [Suspect]
     Active Substance: OMEPRAZOLE MAGNESIUM
     Route: 048
  10. PREVACID [Suspect]
     Active Substance: LANSOPRAZOLE
     Indication: GASTROOESOPHAGEAL REFLUX DISEASE
     Route: 065
     Dates: start: 1997, end: 201712
  11. PREDNISONE. [Concomitant]
     Active Substance: PREDNISONE
  12. ELIQUIS [Concomitant]
     Active Substance: APIXABAN
  13. PREMARIN [Concomitant]
     Active Substance: ESTROGENS, CONJUGATED
  14. NEXIUM 24HR [Suspect]
     Active Substance: ESOMEPRAZOLE MAGNESIUM
     Route: 048
  15. PRILOSEC [Suspect]
     Active Substance: OMEPRAZOLE MAGNESIUM
     Indication: GASTROOESOPHAGEAL REFLUX DISEASE
     Dosage: OMEPRAZOLE
     Route: 065
  16. GABAPENTIN. [Concomitant]
     Active Substance: GABAPENTIN
  17. PRAVASTATIN. [Concomitant]
     Active Substance: PRAVASTATIN
  18. WARFARIN [Concomitant]
     Active Substance: WARFARIN
  19. METOPROLOL. [Concomitant]
     Active Substance: METOPROLOL
  20. HYDROCHLOROTHIAZIDE. [Concomitant]
     Active Substance: HYDROCHLOROTHIAZIDE
  21. VALSARTAN. [Concomitant]
     Active Substance: VALSARTAN
  22. CLONIDINE. [Concomitant]
     Active Substance: CLONIDINE
  23. LISINOPRIL. [Concomitant]
     Active Substance: LISINOPRIL
  24. ATENOLOL. [Concomitant]
     Active Substance: ATENOLOL
  25. DIOVAN [Concomitant]
     Active Substance: VALSARTAN

REACTIONS (3)
  - Chronic kidney disease [Unknown]
  - Renal injury [Not Recovered/Not Resolved]
  - Renal hypertension [Not Recovered/Not Resolved]

NARRATIVE: CASE EVENT DATE: 200906
